FAERS Safety Report 7229635-8 (Version None)
Quarter: 2011Q1

REPORT INFORMATION
  Report Type: 
  Country: None (occurrence: None)
  Receive Date: 20110117
  Receipt Date: 20110104
  Transmission Date: 20110831
  Serious: Yes (Other)
  Sender: FDA-Public Use
  Company Number: PHHY2011DE00592

PATIENT

DRUGS (1)
  1. ZOMETA [Suspect]
     Dosage: 4 MG, UNK

REACTIONS (1)
  - NEPHROTIC SYNDROME [None]
